FAERS Safety Report 4728481-4 (Version None)
Quarter: 2005Q3

REPORT INFORMATION
  Report Type: 
  Country: None (occurrence: None)
  Receive Date: 20050729
  Receipt Date: 20040728
  Transmission Date: 20060218
  Serious: No
  Sender: FDA-Public Use
  Company Number: US-GLAXOSMITHKLINE-A0520102A

PATIENT
  Sex: Female

DRUGS (4)
  1. ZANTAC [Suspect]
     Dosage: 150MG TWICE PER DAY
     Route: 048
     Dates: start: 20040101
  2. WARFARIN [Concomitant]
  3. VITAMINS [Concomitant]
  4. CARDIZEM [Concomitant]

REACTIONS (2)
  - ARTHRALGIA [None]
  - LYMPHADENOPATHY [None]
